FAERS Safety Report 9656600 (Version 1)
Quarter: 2013Q4

REPORT INFORMATION
  Report Type: Spontaneous
  Country: US (occurrence: US)
  Receive Date: 20131030
  Receipt Date: 20131030
  Transmission Date: 20140711
  Serious: No
  Sender: FDA-Public Use
  Company Number: US-GLAXOSMITHKLINE-A1034094A

PATIENT
  Age: 87 Year
  Sex: Male

DRUGS (8)
  1. SEREVENT [Suspect]
     Indication: CHRONIC OBSTRUCTIVE PULMONARY DISEASE
     Dosage: 1PUFF TWICE PER DAY
     Route: 055
     Dates: start: 201207, end: 20130718
  2. COMBIVENT [Concomitant]
  3. AMLODIPINE [Concomitant]
  4. DOXAZOSIN [Concomitant]
  5. GLIPIZIDE [Concomitant]
  6. GEMFIBROZIL [Concomitant]
  7. IRON [Concomitant]
  8. FOLIC ACID [Concomitant]

REACTIONS (1)
  - Drug ineffective [Not Recovered/Not Resolved]
